FAERS Safety Report 6441987-5 (Version None)
Quarter: 2009Q4

REPORT INFORMATION
  Report Type: 
  Country: None (occurrence: None)
  Receive Date: 20091116
  Receipt Date: 20090724
  Transmission Date: 20100525
  Serious: Yes (Other)
  Sender: FDA-Public Use
  Company Number: US-PFIZER INC-2004111457

PATIENT
  Sex: Female

DRUGS (5)
  1. PREMARIN [Suspect]
     Indication: HORMONE REPLACEMENT THERAPY
     Dosage: 0.625 MG, UNK
     Route: 065
     Dates: start: 19930301, end: 19950301
  2. ESTRACE [Suspect]
     Indication: HORMONE REPLACEMENT THERAPY
     Dosage: 1 MG, UNK
     Dates: start: 19950301, end: 20020613
  3. LIPITOR [Concomitant]
     Indication: BLOOD CHOLESTEROL
     Dosage: 20 MG, 1X/DAY
     Dates: start: 19950101
  4. TOPROL-XL [Concomitant]
     Indication: BLOOD PRESSURE
     Dosage: 50 MG, HALF TABLET DAILY
     Dates: start: 19980101
  5. PAXIL [Concomitant]
     Indication: ANXIETY
     Dosage: 20 MG, HALF TABLET DAILY
     Dates: start: 20000101

REACTIONS (1)
  - OVARIAN CANCER [None]
